FAERS Safety Report 15067493 (Version 1)
Quarter: 2018Q2

REPORT INFORMATION
  Report Type: Spontaneous
  Country: US (occurrence: US)
  Receive Date: 20180626
  Receipt Date: 20180626
  Transmission Date: 20180711
  Serious: No
  Sender: FDA-Public Use
  Company Number: US-BAYER-2018-114863

PATIENT
  Age: 53 Year
  Sex: Male

DRUGS (2)
  1. ALEVE [Suspect]
     Active Substance: NAPROXEN SODIUM
     Indication: INFLAMMATION
     Dosage: 2 DF, QD
     Route: 048
  2. ALEVE [Suspect]
     Active Substance: NAPROXEN SODIUM
     Indication: PAIN

REACTIONS (2)
  - Product use issue [Unknown]
  - Drug effective for unapproved indication [Unknown]
